FAERS Safety Report 7512180-X (Version None)
Quarter: 2011Q2

REPORT INFORMATION
  Report Type: 
  Country: None (occurrence: None)
  Receive Date: 20110520
  Receipt Date: 20110505
  Transmission Date: 20111010
  Serious: Yes (Death)
  Sender: FDA-Public Use
  Company Number: AUR-APL-2009-01501

PATIENT
  Age: 71 Year
  Sex: Female

DRUGS (1)
  1. AMOXICILLIN [Suspect]
     Indication: UPPER RESPIRATORY TRACT INFECTION

REACTIONS (9)
  - EROSIVE OESOPHAGITIS [None]
  - TOXIC EPIDERMAL NECROLYSIS [None]
  - STREPTOCOCCUS TEST POSITIVE [None]
  - DIARRHOEA [None]
  - LARGE INTESTINAL HAEMORRHAGE [None]
  - STEVENS-JOHNSON SYNDROME [None]
  - HYPOTHERMIA [None]
  - GASTROINTESTINAL EROSION [None]
  - GASTRITIS EROSIVE [None]
